FAERS Safety Report 24450608 (Version 2)
Quarter: 2024Q4

REPORT INFORMATION
  Report Type: Report from Study
  Country: US (occurrence: US)
  Receive Date: 20241017
  Receipt Date: 20241216
  Transmission Date: 20250114
  Serious: Yes (Death, Hospitalization)
  Sender: ARDELYX
  Company Number: US-ARDELYX-2024ARDX007524

PATIENT
  Sex: Male

DRUGS (64)
  1. XPHOZAH [Suspect]
     Active Substance: TENAPANOR HYDROCHLORIDE
     Indication: Chronic kidney disease
     Dosage: 30 MILLIGRAM, BID
     Route: 048
  2. HYDRALAZINE [Concomitant]
     Active Substance: HYDRALAZINE HYDROCHLORIDE
     Indication: Product used for unknown indication
     Dosage: 1TABLET, BID
     Route: 048
     Dates: start: 20211116, end: 20240726
  3. ASPIRIN [Concomitant]
     Active Substance: ASPIRIN
     Indication: Product used for unknown indication
     Dosage: 1 TABLET, QD
     Route: 048
     Dates: start: 20210120, end: 20240726
  4. ALPRAZOLAM [Concomitant]
     Active Substance: ALPRAZOLAM
     Indication: Product used for unknown indication
     Dosage: 1 TABLET, PRN
     Route: 048
     Dates: start: 20210120, end: 20240726
  5. AMLODIPINE BESYLATE [Concomitant]
     Active Substance: AMLODIPINE BESYLATE
     Indication: Product used for unknown indication
     Dosage: 1 TABLET, QHS (BEDTIME)
     Route: 048
     Dates: start: 20210930, end: 20211116
  6. CALCITRIOL [Concomitant]
     Active Substance: CALCITRIOL
     Indication: Product used for unknown indication
     Dosage: 1 CAPSULE QD  (0.5MCG)
     Route: 048
     Dates: start: 20210120, end: 20210503
  7. CALCITRIOL [Concomitant]
     Active Substance: CALCITRIOL
     Dosage: 2 CAPSULE QD (0.5 MCG)
     Route: 048
     Dates: start: 20210503, end: 20210527
  8. CALCITRIOL [Concomitant]
     Active Substance: CALCITRIOL
     Dosage: 1 CAPSULE (QOD) (0.25 MCG)
     Route: 048
     Dates: start: 20211014, end: 20221007
  9. CALCITRIOL [Concomitant]
     Active Substance: CALCITRIOL
     Dosage: 1 CAPSULE (QOD) (0.25 MCG)
     Route: 048
     Dates: start: 20221007, end: 20230309
  10. CATAPRES [Concomitant]
     Active Substance: CLONIDINE HYDROCHLORIDE
     Indication: Product used for unknown indication
     Dosage: 1 TABLET, TID
     Route: 048
     Dates: start: 20210120, end: 20210120
  11. CATAPRES-TTS [Concomitant]
     Active Substance: CLONIDINE
     Indication: Product used for unknown indication
     Dosage: CATAPRES TTS1 (0.1 MG/24HR),1 PATCH, QW (APPLY EXTERNALLY)
     Route: 062
     Dates: start: 20220729, end: 20220729
  12. CATAPRES-TTS [Concomitant]
     Active Substance: CLONIDINE
     Dosage: CATAPRES TTS 2 (0.2 MG/24 HR),1 PATCH, QW (APPLY EXTERNALLY)
     Route: 062
     Dates: start: 20220729, end: 20240726
  13. ANCEF [Concomitant]
     Active Substance: CEFAZOLIN SODIUM
     Indication: Product used for unknown indication
     Dosage: 1 GRAM MAINT
     Route: 042
     Dates: start: 20210503, end: 20210522
  14. ANCEF [Concomitant]
     Active Substance: CEFAZOLIN SODIUM
     Dosage: 1 GRAM, OD
     Route: 033
     Dates: start: 20210513, end: 20210604
  15. ANCEF [Concomitant]
     Active Substance: CEFAZOLIN SODIUM
     Dosage: 2 GRAM INTIAL
     Route: 033
     Dates: start: 20210531, end: 20210604
  16. ANCEF [Concomitant]
     Active Substance: CEFAZOLIN SODIUM
     Dosage: 1.5 GRAM, INITIAL
     Route: 033
     Dates: start: 20220901, end: 20240726
  17. CEFTAZIDIME [Concomitant]
     Active Substance: CEFTAZIDIME
     Indication: Product used for unknown indication
     Dosage: 1 GRAM, QD
     Route: 033
     Dates: start: 20210513, end: 20210604
  18. CEFTAZIDIME [Concomitant]
     Active Substance: CEFTAZIDIME
     Dosage: 2 GRAM, INITIAL
     Route: 033
     Dates: start: 20210531, end: 20210702
  19. CEFTAZIDIME [Concomitant]
     Active Substance: CEFTAZIDIME
     Dosage: 2 GRAM, QD
     Route: 033
     Dates: start: 20210629, end: 20210706
  20. CEFTAZIDIME [Concomitant]
     Active Substance: CEFTAZIDIME
     Dosage: 1.5 GRAM,INITIAL
     Route: 033
     Dates: start: 20220901, end: 20240726
  21. CHLORTHALIDONE [Concomitant]
     Active Substance: CHLORTHALIDONE
     Indication: Product used for unknown indication
     Dosage: 1 TABLET, QD
     Route: 048
     Dates: start: 20210120, end: 20210706
  22. CHLORTHALIDONE [Concomitant]
     Active Substance: CHLORTHALIDONE
     Dosage: 0.5 TABLET.QD
     Route: 048
     Dates: start: 20210706, end: 20211006
  23. COREG [Concomitant]
     Active Substance: CARVEDILOL
     Indication: Product used for unknown indication
     Dosage: 1 TABLET, QD
     Route: 048
     Dates: start: 20210120, end: 20210503
  24. COREG [Concomitant]
     Active Substance: CARVEDILOL
     Dosage: 2 TABLETS, BID
     Route: 048
     Dates: start: 20210503, end: 20210706
  25. COREG [Concomitant]
     Active Substance: CARVEDILOL
     Dosage: 1 TABLET, BID
     Route: 048
     Dates: start: 20210706, end: 20240726
  26. COZAAR [Concomitant]
     Active Substance: LOSARTAN POTASSIUM
     Indication: Product used for unknown indication
     Dosage: 1 TABLET, QHS (BEDTIME)
     Route: 048
     Dates: start: 20220413, end: 20221007
  27. COZAAR [Concomitant]
     Active Substance: LOSARTAN POTASSIUM
     Dosage: 1 TABLET, QHS (BEDTIME)
     Route: 048
     Dates: start: 20221007, end: 20240726
  28. CRESTOR [Concomitant]
     Active Substance: ROSUVASTATIN CALCIUM
     Indication: Product used for unknown indication
     Dosage: 1 TABLET, QD
     Route: 048
     Dates: start: 20220216, end: 20240726
  29. DESYREL [Concomitant]
     Active Substance: TRAZODONE HYDROCHLORIDE
     Indication: Product used for unknown indication
     Dosage: 1 TABLET, QHS (BEDTIME)
     Route: 048
     Dates: start: 20221007, end: 20230309
  30. DESYREL [Concomitant]
     Active Substance: TRAZODONE HYDROCHLORIDE
     Dosage: 2 TABLETS, QHS (BEDTIME)
     Route: 048
     Dates: start: 20230309, end: 20240726
  31. DESYREL [Concomitant]
     Active Substance: TRAZODONE HYDROCHLORIDE
     Dosage: 1 TABLET, QHS (BEDTIME)
     Route: 048
     Dates: start: 20211111, end: 20221007
  32. PNEUMOVAX 23 [Concomitant]
     Active Substance: PNEUMOCOCCAL VACCINE, POLYVALENT 23
     Indication: Product used for unknown indication
     Dosage: 0.5 MILLILITER- ONLY
     Route: 065
     Dates: start: 20150214, end: 20150215
  33. MIRCERA [Concomitant]
     Active Substance: METHOXY POLYETHYLENE GLYCOL-EPOETIN BETA
     Indication: Product used for unknown indication
     Dosage: 200 MCG, ONLY
     Route: 058
     Dates: start: 20220914, end: 20220915
  34. MIRCERA [Concomitant]
     Active Substance: METHOXY POLYETHYLENE GLYCOL-EPOETIN BETA
     Dosage: 50 MCG,ONLY
     Route: 058
     Dates: start: 20231110, end: 20231111
  35. MIRCERA [Concomitant]
     Active Substance: METHOXY POLYETHYLENE GLYCOL-EPOETIN BETA
     Dosage: 30 MCG,ONLY
     Route: 058
     Dates: start: 20230502, end: 20230503
  36. MODERNA COVID-19 VACCINE [Concomitant]
     Active Substance: ELASOMERAN
     Indication: Product used for unknown indication
     Dosage: 0.5 MILLILITER,ONLY
     Route: 030
     Dates: start: 20210123, end: 20210124
  37. MODERNA COVID-19 VACCINE [Concomitant]
     Active Substance: ELASOMERAN
     Dosage: 0.5 MILLILITER,ONLY
     Route: 030
     Dates: start: 20210206, end: 20210207
  38. NITROGLYCERIN [Concomitant]
     Active Substance: NITROGLYCERIN
     Indication: Product used for unknown indication
     Dosage: 1 TABLET, TID (3 PER DAY)
     Route: 060
     Dates: start: 20220729, end: 20240726
  39. NOVOLOG [Concomitant]
     Active Substance: INSULIN ASPART
     Indication: Product used for unknown indication
     Dosage: 100 UNITS, QD
     Route: 058
     Dates: start: 20210503, end: 20240726
  40. NOVOLOG [Concomitant]
     Active Substance: INSULIN ASPART
     Dosage: 100 UNITS, QD
     Route: 058
     Dates: start: 20210120, end: 20210503
  41. PLAVIX [Concomitant]
     Active Substance: CLOPIDOGREL BISULFATE
     Indication: Product used for unknown indication
     Dosage: 1 TABLET, OD
     Route: 048
     Dates: start: 20220216, end: 20240726
  42. PRILOSEC [Concomitant]
     Active Substance: OMEPRAZOLE MAGNESIUM
     Indication: Product used for unknown indication
     Dosage: 1 CAPSULE, QD
     Route: 048
     Dates: start: 20210120, end: 20220406
  43. PROTONIX [Concomitant]
     Active Substance: PANTOPRAZOLE SODIUM
     Indication: Product used for unknown indication
     Dosage: 1 TABLET, OD
     Route: 048
     Dates: start: 20220406, end: 20240726
  44. RENVELA [Concomitant]
     Active Substance: SEVELAMER CARBONATE
     Indication: Product used for unknown indication
     Dosage: 1 TABLET, QID WITH MEAL
     Route: 048
     Dates: start: 20211117, end: 20221007
  45. RENVELA [Concomitant]
     Active Substance: SEVELAMER CARBONATE
     Dosage: 1 TABLET, QID WITH MEAL
     Route: 048
     Dates: start: 20221007, end: 20240318
  46. RENVELA [Concomitant]
     Active Substance: SEVELAMER CARBONATE
     Dosage: 2 TABLET, QID WITH MEAL
     Route: 048
     Dates: start: 20240318, end: 20240726
  47. SENSIPAR [Concomitant]
     Active Substance: CINACALCET HYDROCHLORIDE
     Indication: Product used for unknown indication
     Dosage: 1 TABLET, OD
     Route: 048
     Dates: start: 20230309, end: 20230418
  48. SENSIPAR [Concomitant]
     Active Substance: CINACALCET HYDROCHLORIDE
     Dosage: 1 TABLET, TIW (3 IN WEEK)
     Route: 048
     Dates: start: 20230418, end: 20240726
  49. TUBERSOL [Concomitant]
     Active Substance: TUBERCULIN PURIFIED PROTEIN DERIVATIVE
     Indication: Product used for unknown indication
     Dosage: 5 TU,ONLY
     Route: 023
     Dates: start: 20210120, end: 20210121
  50. TUBERSOL [Concomitant]
     Active Substance: TUBERCULIN PURIFIED PROTEIN DERIVATIVE
     Dosage: 5 TU, ONLY
     Route: 023
     Dates: start: 20210211, end: 20210212
  51. TUMS ULTRA [Concomitant]
     Active Substance: CALCIUM CARBONATE
     Indication: Product used for unknown indication
     Dosage: 2 TABLETS, TID
     Route: 048
     Dates: start: 20210120, end: 20240726
  52. VANCOMYCIN [Concomitant]
     Active Substance: VANCOMYCIN
     Indication: Product used for unknown indication
     Dosage: 2 GRAM, QTX
     Route: 033
     Dates: start: 20210701, end: 20210805
  53. VANCOMYCIN [Concomitant]
     Active Substance: VANCOMYCIN
     Dosage: 2 GRAM,ONLY
     Route: 033
     Dates: start: 20210702, end: 20210703
  54. VENOFER [Concomitant]
     Active Substance: IRON SUCROSE
     Indication: Product used for unknown indication
     Dosage: 200 MILLIGRAM, MONTHLY (100MG/5ML)
     Route: 042
     Dates: start: 20210208, end: 20220119
  55. VENOFER [Concomitant]
     Active Substance: IRON SUCROSE
     Dosage: 200 MG, MAINT (100MG/5ML)
     Route: 042
     Dates: start: 20210304, end: 20220119
  56. VENOFER [Concomitant]
     Active Substance: IRON SUCROSE
     Dosage: 200 MILLIGRAM,MAINT (100MG/5ML)
     Route: 042
     Dates: start: 20210805, end: 20221007
  57. VENOFER [Concomitant]
     Active Substance: IRON SUCROSE
     Dosage: 200 MILLIGRAM,MAINT (100MG/5ML)
     Route: 042
     Dates: start: 20210405, end: 20220119
  58. VENOFER [Concomitant]
     Active Substance: IRON SUCROSE
     Dosage: 200 MILLIGRAM,OTO (100MG/5ML)
     Route: 042
     Dates: start: 20210503, end: 20210504
  59. VENOFER [Concomitant]
     Active Substance: IRON SUCROSE
     Dosage: 200 MILLIGRAM,MAINT (100MG/5ML)
     Route: 042
     Dates: start: 20210706, end: 20220119
  60. VENOFER [Concomitant]
     Active Substance: IRON SUCROSE
     Dosage: 200 MG, (MAINT) (100 MG/5ML)
     Route: 042
     Dates: start: 20221007, end: 20240726
  61. VITAMIN D [Concomitant]
     Active Substance: VITAMIN D NOS
     Indication: Product used for unknown indication
     Dosage: 1 CAPSULE, QW
     Route: 048
     Dates: start: 20230124, end: 20240726
  62. ZAROXOLYN [Concomitant]
     Active Substance: METOLAZONE
     Indication: Product used for unknown indication
     Dosage: 1 TABLET, QD
     Route: 048
     Dates: start: 20221007, end: 20221110
  63. ZAROXOLYN [Concomitant]
     Active Substance: METOLAZONE
     Dosage: 1 TABLET, QD
     Route: 048
     Dates: start: 20220609, end: 20221007
  64. ZOFRAN [Concomitant]
     Active Substance: ONDANSETRON HYDROCHLORIDE
     Indication: Product used for unknown indication
     Dosage: 4 SOLUBLE TABLET,PRN
     Route: 060
     Dates: start: 20240506, end: 20240726

REACTIONS (2)
  - Acute cardiac event [Fatal]
  - Cardiac failure [Unknown]
